FAERS Safety Report 17088518 (Version 1)
Quarter: 2019Q4

REPORT INFORMATION
  Report Type: Spontaneous
  Country: CZ (occurrence: CZ)
  Receive Date: 20191128
  Receipt Date: 20191128
  Transmission Date: 20200122
  Serious: Yes (Life-Threatening, Other)
  Sender: FDA-Public Use
  Company Number: PHHY2018CZ152397

PATIENT
  Sex: Male
  Weight: 2.08 kg

DRUGS (4)
  1. BETAXOLOL HYDROCHLORIDE. [Suspect]
     Active Substance: BETAXOLOL HYDROCHLORIDE
     Indication: FOETAL EXPOSURE DURING PREGNANCY
     Dosage: UNK
     Route: 064
  2. IRON [Suspect]
     Active Substance: IRON
     Indication: FOETAL EXPOSURE DURING PREGNANCY
     Dosage: UNK
     Route: 064
  3. DETRALEX [Suspect]
     Active Substance: DIOSMIN\HESPERIDIN
     Indication: FOETAL EXPOSURE DURING PREGNANCY
     Dosage: UNK
     Route: 064
  4. DETRALEX [Suspect]
     Active Substance: DIOSMIN\HESPERIDIN
     Route: 064

REACTIONS (11)
  - Atrophy [Recovered/Resolved]
  - Neonatal seizure [Recovered/Resolved]
  - Foetal growth abnormality [Unknown]
  - Oxygen saturation decreased [Recovered/Resolved]
  - Hypotonia neonatal [Recovered/Resolved]
  - Hypoglycaemia neonatal [Recovered/Resolved]
  - Bradycardia neonatal [Recovered/Resolved]
  - Seizure [Recovered/Resolved]
  - Hyperinsulinism [Recovered/Resolved]
  - Foetal exposure during pregnancy [Recovered/Resolved]
  - Muscle spasms [Unknown]
